FAERS Safety Report 6245430-0 (Version None)
Quarter: 2009Q2

REPORT INFORMATION
  Report Type: 
  Country: None (occurrence: None)
  Receive Date: 20090619
  Receipt Date: 20090401
  Transmission Date: 20091009
  Serious: No
  Sender: FDA-Public Use
  Company Number: ALL1-2009-00652

PATIENT
  Age: 10 Year
  Sex: Male
  Weight: 27.7 kg

DRUGS (1)
  1. VYVANSE [Suspect]
     Indication: ATTENTION DEFICIT/HYPERACTIVITY DISORDER
     Dosage: 30 MG IN AM DAILY, ORAL
     Route: 048
     Dates: start: 20090321, end: 20090328

REACTIONS (5)
  - AGITATION [None]
  - ATTENTION DEFICIT/HYPERACTIVITY DISORDER [None]
  - DISINHIBITION [None]
  - IMPULSIVE BEHAVIOUR [None]
  - RESTLESSNESS [None]
